APPROVED DRUG PRODUCT: OCUSERT PILO-40
Active Ingredient: PILOCARPINE
Strength: 11MG
Dosage Form/Route: INSERT, EXTENDED RELEASE;OPHTHALMIC
Application: N017548 | Product #001
Applicant: EPIC PHARMA LLC
Approved: Approved Prior to Jan 1, 1982 | RLD: No | RS: No | Type: DISCN